FAERS Safety Report 6209190-1 (Version None)
Quarter: 2009Q2

REPORT INFORMATION
  Report Type: 
  Country: None (occurrence: None)
  Receive Date: 20090529
  Receipt Date: 20090518
  Transmission Date: 20091009
  Serious: Yes (Hospitalization, Other)
  Sender: FDA-Public Use
  Company Number: US-ROCHE-623926

PATIENT
  Sex: Male
  Weight: 91.2 kg

DRUGS (7)
  1. PEGASYS [Suspect]
     Indication: HEPATITIS C
     Route: 065
  2. PEGASYS [Suspect]
     Route: 065
     Dates: end: 20070101
  3. RIBAVIRIN [Suspect]
     Indication: HEPATITIS C
     Route: 065
  4. RIBAVIRIN [Suspect]
     Route: 065
     Dates: end: 20070101
  5. COUMADIN [Concomitant]
     Dates: start: 19910101
  6. ZOLOFT [Concomitant]
  7. ALPRAZOLAM [Concomitant]

REACTIONS (12)
  - AMNESIA [None]
  - ANXIETY [None]
  - DIZZINESS [None]
  - FAECAL INCONTINENCE [None]
  - FATIGUE [None]
  - HEPATITIS C [None]
  - MENTAL DISORDER [None]
  - PNEUMONIA [None]
  - PYREXIA [None]
  - TOOTH LOSS [None]
  - URINARY INCONTINENCE [None]
  - WEIGHT DECREASED [None]
